FAERS Safety Report 5390672-X (Version None)
Quarter: 2007Q3

REPORT INFORMATION
  Report Type: 
  Country: None (occurrence: None)
  Receive Date: 20070712
  Receipt Date: 20070605
  Transmission Date: 20080115
  Serious: Yes (Other)
  Sender: FDA-Public Use
  Company Number: 6034673

PATIENT
  Age: 72 Year
  Sex: Female

DRUGS (5)
  1. DOXAZOSIN MESYLATE [Suspect]
     Indication: HYPERTENSION
     Dosage: (2 MG) ORAL
     Route: 048
     Dates: start: 20070328, end: 20070430
  2. ASPIRIN [Concomitant]
  3. BENDROFLUMETHIAZIDE [Concomitant]
  4. CANDESARTAN CILEXETIL [Concomitant]
  5. SIMVASTATIN [Concomitant]

REACTIONS (5)
  - CRYING [None]
  - DIZZINESS [None]
  - FATIGUE [None]
  - JOINT SWELLING [None]
  - PERIPHERAL COLDNESS [None]
